FAERS Safety Report 9493144 (Version 1)
Quarter: 2013Q3

REPORT INFORMATION
  Report Type: Spontaneous
  Country: DE (occurrence: DE)
  Receive Date: 20130902
  Receipt Date: 20130902
  Transmission Date: 20140515
  Serious: Yes (Life-Threatening, Other)
  Sender: FDA-Public Use
  Company Number: DE-009507513-1308DEU012009

PATIENT
  Age: 44 Year
  Sex: Male
  Weight: 105 kg

DRUGS (1)
  1. INEGY [Suspect]
     Indication: HYPERCHOLESTEROLAEMIA
     Dosage: 1 DF, 1 DAY
     Route: 048

REACTIONS (2)
  - Renal failure chronic [Not Recovered/Not Resolved]
  - Rhabdomyolysis [Not Recovered/Not Resolved]
